FAERS Safety Report 22767100 (Version 3)
Quarter: 2024Q1

REPORT INFORMATION
  Report Type: Spontaneous
  Country: AR (occurrence: AR)
  Receive Date: 20230731
  Receipt Date: 20240125
  Transmission Date: 20240410
  Serious: Yes (Other)
  Sender: FDA-Public Use
  Company Number: AR-PFIZER INC-PV202300130572

PATIENT
  Age: 79 Year
  Sex: Female

DRUGS (2)
  1. IBRANCE [Suspect]
     Active Substance: PALBOCICLIB
     Indication: Breast cancer metastatic
     Dosage: 125 MG, CYCLIC (DAILY 3X1 SCHEME)
     Dates: start: 20211026
  2. LETROZOLE [Concomitant]
     Active Substance: LETROZOLE
     Dosage: UNK

REACTIONS (8)
  - Diabetes mellitus [Not Recovered/Not Resolved]
  - Ocular discomfort [Unknown]
  - Illness [Unknown]
  - Malaise [Unknown]
  - Hypoacusis [Unknown]
  - Memory impairment [Unknown]
  - Tremor [Unknown]
  - Stress [Unknown]

NARRATIVE: CASE EVENT DATE: 20230101
